FAERS Safety Report 7490240-X (Version None)
Quarter: 2011Q2

REPORT INFORMATION
  Report Type: 
  Country: None (occurrence: None)
  Receive Date: 20110519
  Receipt Date: 20110513
  Transmission Date: 20111010
  Serious: Yes (Hospitalization, Other)
  Sender: FDA-Public Use
  Company Number: US-PFIZER INC-2009171867

PATIENT
  Sex: Male

DRUGS (6)
  1. DILANTIN [Suspect]
     Indication: CONVULSION PROPHYLAXIS
     Dosage: 100 MG, 3X/DAY
     Dates: start: 20030626, end: 20030626
  2. PHENOBARBITAL [Concomitant]
     Dosage: UNK
  3. DILANTIN [Suspect]
     Dosage: 150MG TWICE AND 100MG ONCE
     Route: 048
     Dates: start: 20030627
  4. DILANTIN [Suspect]
     Dosage: 150MG TWICE AND 100MG
     Dates: start: 20030627, end: 20030627
  5. NYQUIL [Concomitant]
     Dosage: UNK
  6. ACETAMINOPHEN [Concomitant]
     Indication: PYREXIA
     Dosage: UNK

REACTIONS (1)
  - STEVENS-JOHNSON SYNDROME [None]
